FAERS Safety Report 9165214 (Version 4)
Quarter: 2013Q1

REPORT INFORMATION
  Report Type: Report from Study
  Country: JP (occurrence: JP)
  Receive Date: 20130315
  Receipt Date: 20130329
  Transmission Date: 20140127
  Serious: Yes (Hospitalization)
  Sender: FDA-Public Use
  Company Number: JP-UCBSA-080200

PATIENT
  Age: 56 Year
  Sex: Male
  Weight: 68 kg

DRUGS (9)
  1. CERTOLIZUMAB PEGOL [Suspect]
     Indication: RHEUMATOID ARTHRITIS
     Dosage: RESCUE THERAPY
     Route: 058
     Dates: start: 20120810
  2. CERTOLIZUMAB PEGOL [Suspect]
     Indication: RHEUMATOID ARTHRITIS
     Route: 058
     Dates: start: 20120124, end: 20120720
  3. SITAGLIPTIN PHOSPOHATE HYDRATE [Concomitant]
     Indication: DIABETES MELLITUS
     Route: 048
     Dates: start: 20130116
  4. VOGLIBOSE [Concomitant]
     Indication: DIABETES MELLITUS
     Route: 048
     Dates: start: 20130219
  5. GLIMEPIRIDE [Concomitant]
     Indication: DIABETES MELLITUS
     Route: 048
     Dates: start: 20130220
  6. METHOTREXATE [Concomitant]
     Indication: RHEUMATOID ARTHRITIS
     Route: 048
     Dates: start: 20130122
  7. FOLIC ACID [Concomitant]
     Indication: VITAMIN SUPPLEMENTATION
     Route: 048
     Dates: start: 20120420
  8. TERBINAFINE HYDROCHLORIDE [Concomitant]
     Indication: TINEA PEDIS
     Route: 061
  9. TERBINAFINE HYDROCHLORIDE [Concomitant]
     Indication: TINEA PEDIS
     Route: 061

REACTIONS (1)
  - Diabetes mellitus [Recovered/Resolved]
